FAERS Safety Report 7474054-2 (Version None)
Quarter: 2011Q2

REPORT INFORMATION
  Report Type: 
  Country: None (occurrence: None)
  Receive Date: 20110511
  Receipt Date: 20110502
  Transmission Date: 20111010
  Serious: Yes (Other)
  Sender: FDA-Public Use
  Company Number: PHHY2011BR37463

PATIENT
  Sex: Male

DRUGS (5)
  1. DIOVAN [Suspect]
     Indication: HYPERTENSION
     Dosage: 1 DF, 80 MG
     Route: 048
     Dates: start: 19950101, end: 19960101
  2. DIOVAN [Suspect]
     Dosage: 320 MG, 2 EXTRA TABLETS
     Route: 048
  3. AMITRIPTYLINE HCL [Concomitant]
     Dosage: 1 DF, UNK
     Route: 048
  4. DIOVAN [Suspect]
     Dosage: 320 MG, 1 DF AT NIGHT
     Route: 048
  5. DIOVAN HCT [Suspect]
     Dosage: 320 MG VALS AND 25 MG HYDR, 1 DF IN THE MORNING
     Route: 048

REACTIONS (4)
  - TEMPOROMANDIBULAR JOINT SYNDROME [None]
  - STRESS [None]
  - BLOOD PRESSURE INCREASED [None]
  - HEADACHE [None]
